FAERS Safety Report 23399501 (Version 1)
Quarter: 2024Q1

REPORT INFORMATION
  Report Type: Spontaneous
  Country: CN (occurrence: CN)
  Receive Date: 20240113
  Receipt Date: 20240113
  Transmission Date: 20240410
  Serious: Yes (Other)
  Sender: FDA-Public Use
  Company Number: None

PATIENT
  Age: 60 Year
  Sex: Female
  Weight: 45 kg

DRUGS (11)
  1. DOCETAXEL [Suspect]
     Active Substance: DOCETAXEL\DOCETAXEL ANHYDROUS
     Indication: Breast cancer
     Dosage: 100 MILLIGRAM, QD
     Route: 042
     Dates: start: 20231021, end: 20231021
  2. CARBOPLATIN [Suspect]
     Active Substance: CARBOPLATIN
     Indication: Breast cancer
     Dosage: 660 MILLIGRAM, QD
     Route: 042
     Dates: start: 20231021, end: 20231021
  3. TRASTUZUMAB [Suspect]
     Active Substance: TRASTUZUMAB
     Indication: Breast cancer
     Dosage: 270 MILLIGRAM, QD, STRENGTH: 150 MG
     Route: 042
     Dates: start: 20231109, end: 20231109
  4. DOCETAXEL [Suspect]
     Active Substance: DOCETAXEL\DOCETAXEL ANHYDROUS
     Indication: Breast cancer
     Dosage: 100 MILLIGRAM, QD
     Route: 042
     Dates: start: 20231217, end: 20231217
  5. CARBOPLATIN [Suspect]
     Active Substance: CARBOPLATIN
     Indication: Breast cancer
     Dosage: 660 MILLIGRAM, QD
     Route: 042
     Dates: start: 20231217, end: 20231217
  6. DOCETAXEL [Suspect]
     Active Substance: DOCETAXEL\DOCETAXEL ANHYDROUS
     Indication: Breast cancer
     Dosage: 100 MILLIGRAM, QD
     Route: 042
     Dates: start: 20231109, end: 20231109
  7. DOCETAXEL [Suspect]
     Active Substance: DOCETAXEL\DOCETAXEL ANHYDROUS
     Indication: Breast cancer
     Dosage: 100 MILLIGRAM, QD
     Route: 042
     Dates: start: 20231129, end: 20231129
  8. TRASTUZUMAB [Suspect]
     Active Substance: TRASTUZUMAB
     Indication: Breast cancer
     Dosage: 270 MILLIGRAM, QD, STRENGTH: 150 MG
     Route: 042
     Dates: start: 20231129, end: 20231129
  9. TRASTUZUMAB [Suspect]
     Active Substance: TRASTUZUMAB
     Indication: Breast cancer
     Dosage: 270 MILLIGRAM, QD, STRENGTH: 150 MG
     Route: 042
     Dates: start: 20231217, end: 20231217
  10. CARBOPLATIN [Suspect]
     Active Substance: CARBOPLATIN
     Indication: Breast cancer
     Dosage: 660 MILLIGRAM, QD
     Route: 042
     Dates: start: 20231109, end: 20231109
  11. CARBOPLATIN [Suspect]
     Active Substance: CARBOPLATIN
     Indication: Breast cancer
     Dosage: 660 MILLIGRAM, QD
     Route: 042
     Dates: start: 20231129, end: 20231129

REACTIONS (2)
  - Myelosuppression [Recovering/Resolving]
  - Gastrointestinal disorder [Recovering/Resolving]

NARRATIVE: CASE EVENT DATE: 20231215
